FAERS Safety Report 4267259-5 (Version None)
Quarter: 2004Q1

REPORT INFORMATION
  Report Type: 
  Country: None (occurrence: None)
  Receive Date: 20040107
  Receipt Date: 20031231
  Transmission Date: 20041129
  Serious: Yes (Hospitalization)
  Sender: FDA-Public Use
  Company Number: DE-JNJFOC-20031205635

PATIENT
  Sex: Female

DRUGS (1)
  1. CAELYX (DOXORUBICIN HYDROCHLORIDE) LIPOSOME INJECTION [Suspect]
     Indication: ASTROCYTOMA
     Dosage: DURATION:  5 CYCLES

REACTIONS (2)
  - PALMAR-PLANTAR ERYTHRODYSAESTHESIA SYNDROME [None]
  - VASCULITIS [None]
